FAERS Safety Report 4433929-9 (Version None)
Quarter: 2004Q3

REPORT INFORMATION
  Report Type: 
  Country: None (occurrence: None)
  Receive Date: 20040825
  Receipt Date: 20040825
  Transmission Date: 20050211
  Serious: Yes (Hospitalization)
  Sender: FDA-Public Use
  Company Number: None

PATIENT
  Age: 62 Year
  Sex: Male
  Weight: 80.7403 kg

DRUGS (13)
  1. GEMCITABINE 100 MG/ML ELI LILLY [Suspect]
     Indication: PANCREATIC CARCINOMA
     Dosage: 1000 MG/M2 EVERY 2 WE IV
     Route: 042
     Dates: start: 20040804, end: 20040804
  2. CISPLATIN [Suspect]
     Indication: PANCREATIC CARCINOMA
     Dosage: 20 MG/M2 EVERY 2 WE IV
     Route: 042
     Dates: start: 20040804, end: 20040804
  3. PROTONIX [Concomitant]
  4. ASPIRIN [Concomitant]
  5. ACTOS [Concomitant]
  6. GLIPIZIDE [Concomitant]
  7. METFORMIN HCL [Concomitant]
  8. LIPITOR [Concomitant]
  9. LISINOPRIL [Concomitant]
  10. CALCIUM [Concomitant]
  11. VITAMIN D [Concomitant]
  12. MULTI-VITAMIN [Concomitant]
  13. NSAIDS [Concomitant]

REACTIONS (1)
  - CHOLANGITIS [None]
